FAERS Safety Report 9388851 (Version 1)
Quarter: 2013Q3

REPORT INFORMATION
  Report Type: Spontaneous
  Country: DE (occurrence: DE)
  Receive Date: 20130708
  Receipt Date: 20130708
  Transmission Date: 20140515
  Serious: Yes (Death, Other)
  Sender: FDA-Public Use
  Company Number: DE-MYLANLABS-2013S1014398

PATIENT
  Age: 10 Year
  Sex: Female

DRUGS (3)
  1. RIBAVIRIN [Suspect]
     Indication: METAPNEUMOVIRUS INFECTION
     Route: 048
  2. RIBAVIRIN [Suspect]
     Indication: METAPNEUMOVIRUS INFECTION
     Route: 042
  3. PREDNISOLONE [Suspect]
     Indication: IMMUNOSUPPRESSION

REACTIONS (3)
  - Disease progression [Unknown]
  - Respiratory failure [Fatal]
  - Off label use [Unknown]
